FAERS Safety Report 5150135-3 (Version None)
Quarter: 2006Q4

REPORT INFORMATION
  Report Type: 
  Country: None (occurrence: None)
  Receive Date: 20061114
  Receipt Date: 20021024
  Transmission Date: 20070319
  Serious: Yes (Other)
  Sender: FDA-Public Use
  Company Number: US-ELI_LILLY_AND_COMPANY-US_021089209

PATIENT
  Age: 47 Year
  Sex: Male

DRUGS (3)
  1. PROZAC [Suspect]
     Dosage: 20 UNK, UNKNOWN
     Dates: start: 20020302
  2. CODEINE [Concomitant]
     Dosage: UNK, UNKNOWN
  3. PROSCAR [Concomitant]
     Dosage: UNK, UNKNOWN

REACTIONS (1)
  - HOMICIDE [None]
